FAERS Safety Report 5058513-8 (Version None)
Quarter: 2006Q2

REPORT INFORMATION
  Report Type: 
  Country: None (occurrence: None)
  Receive Date: 20060627
  Receipt Date: 20050624
  Transmission Date: 20061013
  Serious: Yes (Life-Threatening, Hospitalization)
  Sender: FDA-Public Use
  Company Number: 409002

PATIENT
  Age: 50 Year
  Sex: Male
  Weight: 69.9 kg

DRUGS (2)
  1. XELODA [Suspect]
     Indication: GASTROINTESTINAL NEOPLASM
     Dosage: 1750 MG 2 PER DAY ORAL
     Route: 048
     Dates: start: 20050613, end: 20050616
  2. OXALIPLATIN [Concomitant]

REACTIONS (3)
  - ARTERIOSPASM CORONARY [None]
  - CHEST PAIN [None]
  - ISCHAEMIA [None]
